FAERS Safety Report 23235484 (Version 1)
Quarter: 2023Q4

REPORT INFORMATION
  Report Type: Spontaneous
  Country: CZ (occurrence: CZ)
  Receive Date: 20231128
  Receipt Date: 20231128
  Transmission Date: 20240110
  Serious: Yes (Hospitalization, Other)
  Sender: FDA-Public Use
  Company Number: CZ-AstraZeneca-2023A243874

PATIENT
  Age: 75 Year
  Sex: Female

DRUGS (12)
  1. PALBOCICLIB [Suspect]
     Active Substance: PALBOCICLIB
     Indication: Breast cancer
     Dosage: 125 MG, 1X/DAY
     Route: 048
     Dates: start: 20231002
  2. PALBOCICLIB [Suspect]
     Active Substance: PALBOCICLIB
     Dosage: 125 MG, 1X/DAY
     Route: 048
     Dates: start: 20230515, end: 20230925
  3. MEROPENEM [Suspect]
     Active Substance: MEROPENEM
     Indication: Breast cancer
     Dosage: UNK
  4. ANASTROZOLE [Suspect]
     Active Substance: ANASTROZOLE
     Indication: Breast cancer
     Dosage: 1 MG, 1X/DAY
     Route: 048
     Dates: start: 20231002
  5. ANASTROZOLE [Suspect]
     Active Substance: ANASTROZOLE
     Dosage: 1 MG, 1X/DAY
     Route: 048
     Dates: start: 20230515, end: 20231001
  6. CAMIZESTRANT [Suspect]
     Active Substance: CAMIZESTRANT
     Indication: Breast cancer
     Dosage: AZD9833 , 75 MG 1X DAY
     Route: 048
     Dates: start: 20230515, end: 20231001
  7. CAMIZESTRANT [Suspect]
     Active Substance: CAMIZESTRANT
     Dosage: AZD9833 , 75 MG 1X DAY
     Route: 048
     Dates: start: 20231002
  8. CEFTRIAXONE [Suspect]
     Active Substance: CEFTRIAXONE\CEFTRIAXONE SODIUM
     Indication: Breast cancer
     Dosage: UNK
  9. PLACEBO [Suspect]
     Active Substance: UNSPECIFIED INGREDIENT
     Indication: Breast cancer
     Dosage: PLACEBO FOR ANASTROZOLE
     Route: 048
     Dates: start: 20230515, end: 20231001
  10. PLACEBO [Suspect]
     Active Substance: UNSPECIFIED INGREDIENT
     Dosage: PLACEBO FOR ANASTROZOLE
     Route: 048
     Dates: start: 20231002
  11. PLACEBO [Suspect]
     Active Substance: UNSPECIFIED INGREDIENT
     Indication: Breast cancer
     Dosage: PLACEBO FOR AZD9833
     Route: 048
     Dates: start: 20231002
  12. PLACEBO [Suspect]
     Active Substance: UNSPECIFIED INGREDIENT
     Dosage: PLACEBO FOR AZD9833
     Route: 048
     Dates: start: 20230515, end: 20231001

REACTIONS (2)
  - Hydronephrosis [Recovered/Resolved]
  - Off label use [Unknown]

NARRATIVE: CASE EVENT DATE: 20231020
